FAERS Safety Report 18783995 (Version 1)
Quarter: 2021Q1

REPORT INFORMATION
  Report Type: Other
  Country: GB (occurrence: GB)
  Receive Date: 20210125
  Receipt Date: 20210125
  Transmission Date: 20210419
  Serious: No
  Sender: FDA-Public Use
  Company Number: GB-LUPIN PHARMACEUTICALS INC.-2021-00468

PATIENT
  Age: 17 Year
  Sex: Male
  Weight: 55 kg

DRUGS (1)
  1. SERTRALINE [Suspect]
     Active Substance: SERTRALINE HYDROCHLORIDE
     Indication: ILL-DEFINED DISORDER
     Dosage: 200 MILLIGRAM, UNK
     Route: 048

REACTIONS (4)
  - Joint stiffness [Not Recovered/Not Resolved]
  - Insomnia [Recovering/Resolving]
  - Tremor [Recovered/Resolved]
  - Dizziness [Recovered/Resolved]
